FAERS Safety Report 4735773-1 (Version None)
Quarter: 2005Q3

REPORT INFORMATION
  Report Type: 
  Country: None (occurrence: None)
  Receive Date: 20050805
  Receipt Date: 20050723
  Transmission Date: 20060218
  Serious: Yes (Other)
  Sender: FDA-Public Use
  Company Number: GB-JNJFOC-20050705041

PATIENT
  Sex: Female

DRUGS (4)
  1. CILEST [Suspect]
     Indication: DRUG USE FOR UNKNOWN INDICATION
     Route: 065
  2. DULOXETINE [Interacting]
     Indication: DEPRESSION
     Route: 048
  3. ZOPICLONE [Concomitant]
     Indication: INSOMNIA
     Route: 048
  4. SERTRALINE HCL [Concomitant]
     Indication: DEPRESSION
     Route: 048

REACTIONS (2)
  - DRUG INTERACTION [None]
  - METRORRHAGIA [None]
